FAERS Safety Report 10959225 (Version 2)
Quarter: 2015Q2

REPORT INFORMATION
  Report Type: Spontaneous
  Country: US (occurrence: US)
  Receive Date: 20150327
  Receipt Date: 20150524
  Transmission Date: 20150821
  Serious: No
  Sender: FDA-Public Use
  Company Number: US-JNJFOC-20141010502

PATIENT
  Sex: Female
  Weight: 113.6 kg

DRUGS (1)
  1. GENERIC FENTANYL [Suspect]
     Active Substance: FENTANYL
     Indication: CANCER PAIN
     Dosage: FOR 3 DAYS
     Route: 062
     Dates: start: 20140911

REACTIONS (2)
  - Deafness bilateral [Recovered/Resolved]
  - Otitis media [Not Recovered/Not Resolved]
